FAERS Safety Report 9056489 (Version 1)
Quarter: 2013Q1

REPORT INFORMATION
  Report Type: Spontaneous
  Country: FR (occurrence: FR)
  Receive Date: 20130204
  Receipt Date: 20130204
  Transmission Date: 20140127
  Serious: Yes (Hospitalization)
  Sender: FDA-Public Use
  Company Number: FR-PFIZER INC-2013042603

PATIENT
  Sex: Female

DRUGS (5)
  1. EUPANTOL [Suspect]
     Dosage: UNK
     Route: 065
     Dates: start: 20121207, end: 20121228
  2. RIFAMPICIN [Suspect]
     Indication: MENINGITIS STAPHYLOCOCCAL
     Dosage: UNK
     Route: 065
     Dates: start: 20121214, end: 20121228
  3. BRISTOPEN [Concomitant]
     Indication: MENINGITIS STAPHYLOCOCCAL
     Dosage: UNK
     Dates: start: 20121204, end: 20121222
  4. LACTULOSE [Concomitant]
     Dosage: UNK
     Dates: start: 20121207
  5. TAVANIC [Concomitant]
     Indication: MENINGITIS STAPHYLOCOCCAL
     Dosage: UNK
     Dates: start: 20121222

REACTIONS (5)
  - Purpura [Recovered/Resolved]
  - C-reactive protein increased [Recovered/Resolved]
  - Urticaria [Recovered/Resolved]
  - Rash maculo-papular [Recovered/Resolved]
  - Hyperthermia [Recovered/Resolved]
